FAERS Safety Report 7268867-X (Version None)
Quarter: 2011Q1

REPORT INFORMATION
  Report Type: 
  Country: None (occurrence: None)
  Receive Date: 20110201
  Receipt Date: 20110125
  Transmission Date: 20110831
  Serious: Yes (Hospitalization)
  Sender: FDA-Public Use
  Company Number: FR-PFIZER INC-2011017082

PATIENT
  Age: 11 Year
  Sex: Female
  Weight: 26 kg

DRUGS (2)
  1. DILANTIN [Suspect]
     Dosage: UNK
     Dates: start: 20101101
  2. DILANTIN [Suspect]
     Dosage: 250 MG, SINGLE
     Route: 042
     Dates: start: 20110104, end: 20110104

REACTIONS (3)
  - ERYTHEMA [None]
  - FACE OEDEMA [None]
  - ADVERSE DRUG REACTION [None]
